FAERS Safety Report 18420115 (Version 1)
Quarter: 2020Q4

REPORT INFORMATION
  Report Type: Spontaneous
  Country: US (occurrence: US)
  Receive Date: 20201023
  Receipt Date: 20201023
  Transmission Date: 20210114
  Serious: Yes (Hospitalization, Other)
  Sender: FDA-Public Use
  Company Number: US-AAVISPHARMA-2020AP000005

PATIENT

DRUGS (6)
  1. KETOCONAZOLE TABLETS [Suspect]
     Active Substance: KETOCONAZOLE
  2. ETOPOSIDE. [Concomitant]
     Active Substance: ETOPOSIDE
     Indication: METASTASES TO LIVER
  3. PEMBROLIZUMAB. [Suspect]
     Active Substance: PEMBROLIZUMAB
     Indication: ADRENAL GLAND CANCER
  4. CISPLATIN. [Concomitant]
     Active Substance: CISPLATIN
  5. MITOTANE [Concomitant]
     Active Substance: MITOTANE
     Indication: ADRENAL GLAND CANCER
  6. DOXORUBICIN [Concomitant]
     Active Substance: DOXORUBICIN
     Indication: METASTASES TO LIVER

REACTIONS (3)
  - Hepatotoxicity [Recovered/Resolved]
  - Drug interaction [Recovered/Resolved]
  - Drug-induced liver injury [Recovered/Resolved]
